FAERS Safety Report 15233494 (Version 1)
Quarter: 2018Q3

REPORT INFORMATION
  Report Type: Spontaneous
  Country: US (occurrence: US)
  Receive Date: 20180709
  Receipt Date: 20180709
  Transmission Date: 20181010
  Serious: Yes (Hospitalization)
  Sender: FDA-Public Use
  Company Number: None

PATIENT
  Sex: Female

DRUGS (2)
  1. CAPECITABINE. [Suspect]
     Active Substance: CAPECITABINE
     Indication: COLON CANCER
     Dosage: ?          OTHER FREQUENCY:BID X 14/21 DAYS;?
     Route: 048
     Dates: start: 20180608, end: 20180709
  2. ATORVASTATIN 10MG [Concomitant]
     Active Substance: ATORVASTATIN

REACTIONS (1)
  - Unevaluable event [None]
